FAERS Safety Report 5350621-7 (Version None)
Quarter: 2007Q2

REPORT INFORMATION
  Report Type: 
  Country: None (occurrence: None)
  Receive Date: 20070608
  Receipt Date: 20070531
  Transmission Date: 20071010
  Serious: Yes (Other)
  Sender: FDA-Public Use
  Company Number: BR-ROCHE-500553

PATIENT
  Age: 26 Year
  Sex: Female
  Weight: 63 kg

DRUGS (1)
  1. ISOTRETINOIN [Suspect]
     Indication: ACNE
     Dosage: IT WAS REPORTED THAT THE MOTHER DID NOT TAKE ISOTRETINOIN ACCORDING TO THE MEDICAL PRESCRIPTION IN +
     Route: 048
     Dates: start: 20060901, end: 20070201

REACTIONS (2)
  - NO ADVERSE EFFECT [None]
  - PREGNANCY [None]
